FAERS Safety Report 4792506-0 (Version None)
Quarter: 2005Q4

REPORT INFORMATION
  Report Type: 
  Country: None (occurrence: None)
  Receive Date: 20051010
  Receipt Date: 20050930
  Transmission Date: 20060501
  Serious: Yes (Other)
  Sender: FDA-Public Use
  Company Number: US-JNJFOC-20051000684

PATIENT
  Age: 11 Year
  Sex: Female
  Weight: 31.75 kg

DRUGS (2)
  1. RISPERDAL [Suspect]
     Dosage: (MISSED ^SEVERAL DOSES^ DUE TO HURRICAINE RITA AND MANDATORY EVACUATIONS)
     Route: 048
     Dates: start: 20050826
  2. RISPERDAL [Suspect]
     Indication: ANXIETY
     Dosage: (SOON INCREASED TO 0.5 MG DAILY)
     Route: 048
     Dates: start: 20050826

REACTIONS (4)
  - DIPLOPIA [None]
  - DIZZINESS [None]
  - VOMITING [None]
  - WHITE BLOOD CELL COUNT DECREASED [None]
